FAERS Safety Report 4383670-6 (Version None)
Quarter: 2004Q2

REPORT INFORMATION
  Report Type: 
  Country: None (occurrence: None)
  Receive Date: 20040623
  Receipt Date: 20040610
  Transmission Date: 20050107
  Serious: Yes (Hospitalization, Other)
  Sender: FDA-Public Use
  Company Number: 368492

PATIENT
  Age: 71 Year
  Sex: Male

DRUGS (5)
  1. CARVEDILOL [Suspect]
     Indication: MYOCARDIAL INFARCTION
     Dosage: 10MG PER DAY
     Route: 048
     Dates: start: 20040122, end: 20040209
  2. GLYBURIDE [Suspect]
     Indication: DRUG USE FOR UNKNOWN INDICATION
     Dosage: 2.5MG PER DAY
     Route: 048
     Dates: end: 20040209
  3. ASPIRIN [Suspect]
     Indication: DRUG USE FOR UNKNOWN INDICATION
     Dosage: 100MG PER DAY
     Route: 048
     Dates: end: 20040209
  4. NORVASC [Suspect]
     Dosage: 5MG PER DAY
     Route: 048
     Dates: end: 20040209
  5. LASIX [Concomitant]
     Indication: DRUG USE FOR UNKNOWN INDICATION
     Dates: end: 20040122

REACTIONS (9)
  - ALANINE AMINOTRANSFERASE INCREASED [None]
  - ASPARTATE AMINOTRANSFERASE INCREASED [None]
  - CHROMATURIA [None]
  - HEPATIC FUNCTION ABNORMAL [None]
  - JAUNDICE [None]
  - NAUSEA [None]
  - PRURITUS GENERALISED [None]
  - PYREXIA [None]
  - VOMITING [None]
